FAERS Safety Report 17188369 (Version 1)
Quarter: 2019Q4

REPORT INFORMATION
  Report Type: Report from Study
  Country: None (occurrence: US)
  Receive Date: 20191222
  Receipt Date: 20191222
  Transmission Date: 20200122
  Serious: Yes (Hospitalization, Other)
  Sender: FDA-Public Use
  Company Number: US-ABBVIE-18K-163-3117457-00

PATIENT
  Age: 76 Year
  Sex: Female

DRUGS (9)
  1. IMBRUVICA [Suspect]
     Active Substance: IBRUTINIB
     Indication: CHRONIC LYMPHOCYTIC LEUKAEMIA RECURRENT
     Dosage: 280 MG, QD
     Route: 048
  2. IMBRUVICA [Suspect]
     Active Substance: IBRUTINIB
     Dosage: UNK
     Route: 048
     Dates: start: 201809
  3. IMBRUVICA [Suspect]
     Active Substance: IBRUTINIB
     Dosage: 140 MG, QD
     Route: 048
  4. IMBRUVICA [Suspect]
     Active Substance: IBRUTINIB
     Dosage: 140 MG, QD
     Route: 048
     Dates: start: 20180906
  5. IMBRUVICA [Suspect]
     Active Substance: IBRUTINIB
     Dosage: 140 MG, QD
     Route: 048
     Dates: start: 20190821
  6. IMBRUVICA [Suspect]
     Active Substance: IBRUTINIB
     Indication: LYMPHOCYTIC LEUKAEMIA
     Dosage: 140 MG, QD
     Route: 048
     Dates: start: 20180710
  7. IMBRUVICA [Suspect]
     Active Substance: IBRUTINIB
     Dosage: 140 MG, QOD
     Route: 048
  8. IMBRUVICA [Suspect]
     Active Substance: IBRUTINIB
     Dosage: 140 MG, QD
     Route: 048
     Dates: start: 201809
  9. IMBRUVICA [Suspect]
     Active Substance: IBRUTINIB
     Dosage: 140 MG, QD
     Route: 048
     Dates: start: 20180710

REACTIONS (15)
  - Pain [Not Recovered/Not Resolved]
  - Cardiac dysfunction [Unknown]
  - Weight decreased [Recovering/Resolving]
  - Hypotension [Recovered/Resolved]
  - Blood count abnormal [Unknown]
  - Diarrhoea [Unknown]
  - Haemoglobin decreased [Recovering/Resolving]
  - Pneumonia [Unknown]
  - Platelet count decreased [Recovering/Resolving]
  - Headache [Recovered/Resolved]
  - White blood cell count decreased [Recovering/Resolving]
  - Hospitalisation [Unknown]
  - Incorrect dose administered [Unknown]
  - Heart rate abnormal [Recovered/Resolved]
  - Fatigue [Not Recovered/Not Resolved]

NARRATIVE: CASE EVENT DATE: 2018
